FAERS Safety Report 7775928-5 (Version None)
Quarter: 2011Q3

REPORT INFORMATION
  Report Type: 
  Country: None (occurrence: None)
  Receive Date: 20110923
  Receipt Date: 20110914
  Transmission Date: 20111222
  Serious: Yes (Hospitalization, Other)
  Sender: FDA-Public Use
  Company Number: US-ASTRAZENECA-2011SE55154

PATIENT
  Sex: Female

DRUGS (1)
  1. ENTOCORT EC [Suspect]
     Route: 048

REACTIONS (2)
  - THERAPEUTIC RESPONSE DECREASED [None]
  - OSTEOPOROSIS [None]
